FAERS Safety Report 24263917 (Version 1)
Quarter: 2024Q3

REPORT INFORMATION
  Report Type: Spontaneous
  Country: US (occurrence: None)
  Receive Date: 20240828
  Receipt Date: 20240828
  Transmission Date: 20241017
  Serious: No
  Sender: Public
  Company Number: None

PATIENT
  Age: 40 Year
  Sex: Female
  Weight: 106.65 kg

DRUGS (3)
  1. SUBLOCADE [Suspect]
     Active Substance: BUPRENORPHINE
     Indication: Substance use disorder
     Dosage: OTHER FREQUENCY : MONTHLY;?
     Route: 030
     Dates: start: 20240820
  2. NOVOLOG [Concomitant]
     Active Substance: INSULIN ASPART
  3. Omnipod5 [Concomitant]

REACTIONS (5)
  - Product substitution issue [None]
  - Dizziness [None]
  - Nausea [None]
  - Vomiting [None]
  - Pruritus [None]

NARRATIVE: CASE EVENT DATE: 20240820
